FAERS Safety Report 4852194-1 (Version None)
Quarter: 2005Q4

REPORT INFORMATION
  Report Type: 
  Country: None (occurrence: None)
  Receive Date: 20051213
  Receipt Date: 20030213
  Transmission Date: 20060501
  Serious: Yes (Life-Threatening, Hospitalization, Other)
  Sender: FDA-Public Use
  Company Number: JP-GLAXOSMITHKLINE-B0292332A

PATIENT
  Age: 85 Year
  Sex: Male
  Weight: 44 kg

DRUGS (8)
  1. VALTREX [Suspect]
     Indication: HERPES ZOSTER
     Route: 048
     Dates: start: 20030204
  2. ZOPICLONE [Suspect]
     Indication: INSOMNIA
     Route: 048
     Dates: end: 20030208
  3. ISDN [Concomitant]
     Indication: HYPERTENSION
     Route: 062
     Dates: end: 20030208
  4. PRECIPITATED CALCIUM CARBONATE [Concomitant]
     Dosage: 3G PER DAY
     Route: 048
     Dates: end: 20030208
  5. ETHYL ICOSAPENTATE [Concomitant]
     Dosage: 900MG PER DAY
     Route: 048
     Dates: end: 20030208
  6. CANDESARTAN CILEXETIL [Concomitant]
     Indication: HYPERTENSION
     Dosage: 4MG PER DAY
     Route: 048
     Dates: end: 20030208
  7. CALCIUM POLYSTYRENE SULFONATE [Concomitant]
     Dosage: 5G PER DAY
     Route: 048
     Dates: end: 20030208
  8. MOSAPRIDE CITRATE [Concomitant]
     Dosage: 15MG PER DAY
     Route: 048
     Dates: end: 20030208

REACTIONS (5)
  - COMMUNICATION DISORDER [None]
  - DEPRESSED LEVEL OF CONSCIOUSNESS [None]
  - GAIT DISTURBANCE [None]
  - NERVOUS SYSTEM DISORDER [None]
  - RESPIRATORY DISORDER [None]
